FAERS Safety Report 9272150 (Version 4)
Quarter: 2013Q4

REPORT INFORMATION
  Report Type: Report from Study
  Country: US (occurrence: US)
  Receive Date: 20130506
  Receipt Date: 20131213
  Transmission Date: 20140711
  Serious: Yes (Hospitalization)
  Sender: FDA-Public Use
  Company Number: US-US-EMD SERONO, INC.-7208545

PATIENT
  Age: 48 Year
  Sex: Female

DRUGS (2)
  1. REBIF [Suspect]
     Indication: MULTIPLE SCLEROSIS
     Route: 058
     Dates: start: 20111207, end: 201303
  2. REBIF [Suspect]
     Route: 058
     Dates: start: 20130503

REACTIONS (1)
  - Pulmonary sarcoidosis [Recovering/Resolving]
